FAERS Safety Report 4956310-2 (Version None)
Quarter: 2006Q1

REPORT INFORMATION
  Report Type: 
  Country: None (occurrence: None)
  Receive Date: 20060323
  Receipt Date: 20060314
  Transmission Date: 20060701
  Serious: No
  Sender: FDA-Public Use
  Company Number: 06H-114-0306576-00

PATIENT
  Sex: 0

DRUGS (1)
  1. DOBUTAMINE HCL [Suspect]
     Indication: CARDIAC STRESS TEST
     Dosage: 10 MCG/KG/MIN, +10 MCG/KG/MIN Q 3 MIN TO TEST END PT., INTRAVENOUS INFUSION
     Route: 042

REACTIONS (1)
  - ATRIAL FIBRILLATION [None]
